FAERS Safety Report 24965628 (Version 5)
Quarter: 2025Q4

REPORT INFORMATION
  Report Type: Report from Study
  Country: EU (occurrence: EU)
  Receive Date: 20250213
  Receipt Date: 20251118
  Transmission Date: 20260118
  Serious: Yes (Death, Other)
  Sender: TAKEDA
  Company Number: EU-TAKEDA-2025TUS015627

PATIENT
  Age: 78 Year
  Sex: Male
  Weight: 81.4 kg

DRUGS (15)
  1. HUMAN IMMUNOGLOBULIN G\HYALURONIDASE RECOMBINANT HUMAN [Suspect]
     Active Substance: HUMAN IMMUNOGLOBULIN G\HYALURONIDASE (HUMAN RECOMBINANT)
     Indication: Hypogammaglobulinaemia
     Dosage: 10 MILLIGRAM
     Dates: start: 20241023, end: 20241023
  2. HUMAN IMMUNOGLOBULIN G\HYALURONIDASE RECOMBINANT HUMAN [Suspect]
     Active Substance: HUMAN IMMUNOGLOBULIN G\HYALURONIDASE (HUMAN RECOMBINANT)
     Indication: Plasma cell myeloma
     Dosage: 20 MILLIGRAM
     Dates: start: 20241030, end: 20241030
  3. HUMAN IMMUNOGLOBULIN G\HYALURONIDASE RECOMBINANT HUMAN [Suspect]
     Active Substance: HUMAN IMMUNOGLOBULIN G\HYALURONIDASE (HUMAN RECOMBINANT)
     Indication: Secondary immunodeficiency
     Dosage: 30 MILLIGRAM
     Dates: start: 20241113, end: 20241113
  4. HUMAN IMMUNOGLOBULIN G\HYALURONIDASE RECOMBINANT HUMAN [Suspect]
     Active Substance: HUMAN IMMUNOGLOBULIN G\HYALURONIDASE (HUMAN RECOMBINANT)
     Dosage: 40 MILLIGRAM
     Dates: start: 20241204, end: 20241204
  5. LOSEC [Concomitant]
     Active Substance: OMEPRAZOLE
     Indication: Gastrooesophageal reflux prophylaxis
     Dosage: 20 MICROGRAM, QD
     Dates: start: 20120326
  6. VALTREX [Concomitant]
     Active Substance: VALACYCLOVIR HYDROCHLORIDE
     Indication: Herpes zoster
     Dosage: 500 MICROGRAM, QD
     Dates: start: 20130722
  7. SULFAMETHOXAZOLE\TRIMETHOPRIM [Concomitant]
     Active Substance: SULFAMETHOXAZOLE\TRIMETHOPRIM
     Indication: Pneumocystis jirovecii pneumonia
     Dosage: 960 MICROGRAM, QOD
     Dates: start: 20151116
  8. PREGABALIN [Concomitant]
     Active Substance: PREGABALIN
     Indication: Neuropathy peripheral
     Dosage: 75 MICROGRAM, BID
     Dates: start: 20130513
  9. CALCIUM CARBONATE\CHOLECALCIFEROL [Concomitant]
     Active Substance: CALCIUM CARBONATE\CHOLECALCIFEROL
     Indication: Hypocalcaemia
     Dosage: 500 MICROGRAM, BID
     Dates: start: 20190121
  10. ACETAMINOPHEN\CODEINE PHOSPHATE [Concomitant]
     Active Substance: ACETAMINOPHEN\CODEINE PHOSPHATE
     Indication: Bone pain
     Dosage: 500 MICROGRAM
  11. CHOLECALCIFEROL [Concomitant]
     Active Substance: CHOLECALCIFEROL
     Indication: Hypocalcaemia
     Dosage: UNK UNK, 1/WEEK
     Dates: start: 20190503
  12. ENOXAPARIN SODIUM [Concomitant]
     Active Substance: ENOXAPARIN SODIUM
     Indication: Thrombosis prophylaxis
     Dosage: 0.8 MILLILITER, QD
     Dates: start: 20151110
  13. Fentadur [Concomitant]
     Indication: Bone pain
     Dosage: UNK UNK, Q72H
     Dates: start: 20231026
  14. FEBUXOSTAT [Concomitant]
     Active Substance: FEBUXOSTAT
     Indication: Hyperuricaemia
     Dosage: 80 MICROGRAM, QD
     Dates: start: 202206
  15. Trofocard [Concomitant]
     Indication: Hypocalcaemia
     Dosage: 121.56 MICROGRAM, QD
     Dates: start: 201505

REACTIONS (2)
  - Lower respiratory tract infection [Fatal]
  - Chronic kidney disease [Recovered/Resolved]

NARRATIVE: CASE EVENT DATE: 20241128
